FAERS Safety Report 9448681 (Version 2)
Quarter: 2014Q1

REPORT INFORMATION
  Report Type: Report from Study
  Country: AU (occurrence: AU)
  Receive Date: 20130808
  Receipt Date: 20140318
  Transmission Date: 20141002
  Serious: Yes (Life-Threatening, Hospitalization)
  Sender: FDA-Public Use
  Company Number: AU-ROCHE-1259544

PATIENT
  Age: 83 Year
  Sex: Female

DRUGS (7)
  1. RANIBIZUMAB [Suspect]
     Indication: PRODUCT USED FOR UNKNOWN INDICATION
     Dosage: 0.5 MG IN 0.005, MOST RECENT DOSE: 22/MAY/2013
     Route: 050
     Dates: start: 20071218
  2. RANIBIZUMAB [Suspect]
     Dosage: 0.5 MG IN 0.005 ML
     Route: 050
     Dates: start: 20130522
  3. SERETIDE [Concomitant]
  4. SPIRIVA [Concomitant]
  5. METHOTREXATE [Concomitant]
  6. EPILIM [Concomitant]
  7. FOLIC ACID [Concomitant]

REACTIONS (1)
  - Cerebrovascular accident [Recovering/Resolving]
